FAERS Safety Report 8555344-9 (Version None)
Quarter: 2012Q3

REPORT INFORMATION
  Report Type: 
  Country: None (occurrence: None)
  Receive Date: 20120731
  Receipt Date: 20110829
  Transmission Date: 20120928
  Serious: No
  Sender: FDA-Public Use
  Company Number: US-ASTRAZENECA-2011SE27931

PATIENT
  Age: 47 Year
  Sex: Female

DRUGS (6)
  1. LITHIUM CARBONATE [Concomitant]
  2. SYNTHROID [Concomitant]
  3. SEROQUEL XR [Suspect]
     Indication: BIPOLAR I DISORDER
     Route: 048
     Dates: start: 20110401
  4. ATENOLOL [Concomitant]
  5. LAMICTAL [Concomitant]
  6. BIRTH CONTROL [Concomitant]

REACTIONS (1)
  - SPEECH DISORDER [None]
